FAERS Safety Report 6657150-9 (Version None)
Quarter: 2010Q1

REPORT INFORMATION
  Report Type: 
  Country: None (occurrence: None)
  Receive Date: 20100330
  Receipt Date: 20100319
  Transmission Date: 20100710
  Serious: Yes (Other)
  Sender: FDA-Public Use
  Company Number: US-JNJFOC-20100306340

PATIENT
  Sex: Female
  Weight: 55.79 kg

DRUGS (2)
  1. ORTHO TRI-CYCLEN LO [Suspect]
     Indication: CONTRACEPTION
     Route: 048
  2. VITAMIN TAB [Concomitant]
     Indication: GENERAL PHYSICAL CONDITION
     Route: 048

REACTIONS (3)
  - METRORRHAGIA [None]
  - PHARYNGITIS STREPTOCOCCAL [None]
  - PYREXIA [None]
